FAERS Safety Report 16581705 (Version 3)
Quarter: 2019Q3

REPORT INFORMATION
  Report Type: Report from Study
  Country: US (occurrence: US)
  Receive Date: 20190716
  Receipt Date: 20190820
  Transmission Date: 20191004
  Serious: Yes (Death, Hospitalization, Other)
  Sender: FDA-Public Use
  Company Number: US-ACTELION-A-NJ2019-191823

PATIENT
  Age: 68 Year
  Sex: Female
  Weight: 58.96 kg

DRUGS (4)
  1. OPSUMIT [Suspect]
     Active Substance: MACITENTAN
     Indication: PULMONARY ARTERIAL HYPERTENSION
     Dosage: 10 MG, QD
     Route: 048
  2. TYVASO [Suspect]
     Active Substance: TREPROSTINIL
     Indication: PRODUCT USED FOR UNKNOWN INDICATION
     Dosage: 6 BREATHS, 4X^S/DAY
     Route: 055
  3. ELIQUIS [Concomitant]
     Active Substance: APIXABAN
  4. REVATIO [Concomitant]
     Active Substance: SILDENAFIL CITRATE

REACTIONS (16)
  - Pulmonary arterial hypertension [Fatal]
  - Cardiac failure [Unknown]
  - Acute respiratory failure [Unknown]
  - Shock [Fatal]
  - Headache [Unknown]
  - Hyponatraemia [Fatal]
  - Renal failure [Unknown]
  - Mental status changes [Unknown]
  - Encephalopathy [Fatal]
  - Mixed connective tissue disease [Fatal]
  - Haemodynamic instability [Unknown]
  - Acute kidney injury [Fatal]
  - Escherichia urinary tract infection [Unknown]
  - Septic shock [Unknown]
  - Fluid overload [Unknown]
  - Dry mouth [Unknown]

NARRATIVE: CASE EVENT DATE: 20190718
